FAERS Safety Report 6596835-X (Version None)
Quarter: 2010Q1

REPORT INFORMATION
  Report Type: 
  Country: None (occurrence: None)
  Receive Date: 20100212
  Receipt Date: 20090813
  Transmission Date: 20100710
  Serious: No
  Sender: FDA-Public Use
  Company Number: 2009-00551

PATIENT
  Age: 71 Year
  Sex: Female
  Weight: 55.7924 kg

DRUGS (7)
  1. ZICAM COLD REMEDY ALLERGY RELIEF SWABS [Suspect]
     Dosage: USED A FEW TIMES; WINTER 2008, FEW TIMES
  2. ZICAM COLD REMEDY NASAL GEL [Suspect]
     Dosage: FEW TIMES; WINTER 2008, USED A FEW
  3. LIPITOR [Concomitant]
  4. MULTI-VITAMIN [Concomitant]
  5. TUMS [Concomitant]
  6. ACTONEL [Concomitant]
  7. ADVAIR DISKUS 100/50 [Concomitant]

REACTIONS (2)
  - AGEUSIA [None]
  - ANOSMIA [None]
